FAERS Safety Report 13903105 (Version 4)
Quarter: 2018Q4

REPORT INFORMATION
  Report Type: Spontaneous
  Country: FR (occurrence: FR)
  Receive Date: 20170824
  Receipt Date: 20181011
  Transmission Date: 20190204
  Serious: Yes (Hospitalization)
  Sender: FDA-Public Use
  Company Number: FR-PURDUE-GBR-2017-0048164

PATIENT
  Age: 85 Year
  Sex: Male

DRUGS (23)
  1. PANTOPRAZOLE [Concomitant]
     Active Substance: PANTOPRAZOLE
     Dosage: UNK
     Dates: start: 20170628
  2. SODIUM BICARBONATE. [Concomitant]
     Active Substance: SODIUM BICARBONATE
     Dosage: UNK
     Dates: start: 20170623, end: 20170626
  3. VOGALENE [Concomitant]
     Active Substance: METOPIMAZINE
     Dosage: UNK
     Dates: start: 20170623
  4. SIMVASTATIN. [Concomitant]
     Active Substance: SIMVASTATIN
     Dosage: UNK
     Dates: start: 20170623, end: 20170627
  5. ALLOPURINOL. [Concomitant]
     Active Substance: ALLOPURINOL
     Dosage: UNK
     Dates: start: 20170624, end: 20170628
  6. PARACETAMOL [Concomitant]
     Active Substance: ACETAMINOPHEN
     Dosage: UNK
     Dates: start: 20170626
  7. FUNGIZONE [Concomitant]
     Active Substance: AMPHOTERICIN B
     Dosage: UNK
     Dates: start: 20170627, end: 20170710
  8. OXYNORM [Suspect]
     Active Substance: OXYCODONE HYDROCHLORIDE
     Indication: PAIN
     Dosage: UNK [10MG/ML STRENGTH]
     Route: 042
     Dates: start: 20170628, end: 20170710
  9. MIMPARA                            /01735301/ [Concomitant]
     Dosage: UNK
     Dates: start: 20170624, end: 20170628
  10. KARDEGIC [Concomitant]
     Active Substance: ASPIRIN DL-LYSINE
     Dosage: UNK
     Dates: start: 20170624, end: 20170626
  11. DIFFU K [Concomitant]
     Active Substance: POTASSIUM CHLORIDE
     Dosage: UNK
     Dates: start: 20170626, end: 20170630
  12. INEXIUM                            /01479302/ [Concomitant]
     Active Substance: ESOMEPRAZOLE MAGNESIUM
     Dosage: UNK
     Dates: start: 20170626, end: 20170628
  13. METHYLPREDNISOLONE. [Concomitant]
     Active Substance: METHYLPREDNISOLONE
     Dosage: UNK
     Dates: start: 20170628, end: 20170712
  14. SCOBUREN [Suspect]
     Active Substance: BUTYLSCOPOLAMINE
     Indication: PAIN
     Dosage: 4 DF, DAILY
     Route: 042
     Dates: start: 20170629, end: 20170712
  15. SPASFON                            /00934601/ [Concomitant]
     Active Substance: PHLOROGLUCINOL
     Dosage: UNK
     Dates: start: 20170626
  16. SODIUM ALGINATE [Concomitant]
     Active Substance: SODIUM ALGINATE
     Dosage: UNK
     Dates: start: 20170623, end: 20170626
  17. FUROSEMIDE. [Concomitant]
     Active Substance: FUROSEMIDE
     Dosage: UNK
     Dates: start: 20170624, end: 20170626
  18. SPECIAFOLDINE [Concomitant]
     Active Substance: FOLIC ACID
     Dosage: UNK
     Dates: start: 20170623, end: 20170628
  19. ONDANSETRON [Concomitant]
     Active Substance: ONDANSETRON
     Dosage: UNK
     Dates: start: 20170626, end: 20170710
  20. METOCLOPRAMIDE. [Concomitant]
     Active Substance: METOCLOPRAMIDE
     Dosage: UNK
     Dates: start: 20170627, end: 20170628
  21. OCTREOTIDE. [Concomitant]
     Active Substance: OCTREOTIDE
     Dosage: UNK
     Dates: start: 20170630, end: 20170712
  22. BROMAZEPAM [Suspect]
     Active Substance: BROMAZEPAM
     Indication: PRODUCT USED FOR UNKNOWN INDICATION
     Dosage: 1.5 MG, DAILY, (25MCG/HEURE EN CONTINU)
     Route: 048
     Dates: start: 20170701, end: 20170703
  23. CALCIPARINE [Concomitant]
     Active Substance: HEPARIN CALCIUM
     Dosage: UNK
     Dates: start: 20170623, end: 20170712

REACTIONS (2)
  - Mydriasis [Recovered/Resolved]
  - Confusional state [Recovered/Resolved]

NARRATIVE: CASE EVENT DATE: 20170701
